FAERS Safety Report 5451836-X (Version None)
Quarter: 2007Q3

REPORT INFORMATION
  Report Type: 
  Country: None (occurrence: None)
  Receive Date: 20070912
  Receipt Date: 20070829
  Transmission Date: 20080115
  Serious: Yes (Life-Threatening)
  Sender: FDA-Public Use
  Company Number: ENT 2007-0104

PATIENT
  Age: 77 Year
  Sex: Female

DRUGS (10)
  1. COMTAN [Suspect]
     Indication: PARKINSON'S DISEASE
     Dosage: 200 MG (100 MG, 2 IN 1 D); 400 MG (100 MG, 4 IN 1D)
     Route: 048
     Dates: start: 20070614, end: 20070627
  2. COMTAN [Suspect]
     Indication: PARKINSON'S DISEASE
     Dosage: 200 MG (100 MG, 2 IN 1 D); 400 MG (100 MG, 4 IN 1D)
     Route: 048
     Dates: start: 20070628, end: 20070629
  3. MENESIT [Concomitant]
  4. FLUVOXAMINE MALEATE [Concomitant]
  5. RIVOTRIL [Concomitant]
  6. PERMAX [Concomitant]
  7. ARICEPT [Concomitant]
  8. SIFROL [Concomitant]
  9. MAGLAX [Concomitant]
  10. DIOVAN [Concomitant]

REACTIONS (2)
  - PNEUMONIA [None]
  - RESPIRATORY FAILURE [None]
